FAERS Safety Report 9783274 (Version 1)
Quarter: 2013Q4

REPORT INFORMATION
  Report Type: Spontaneous
  Country: CH (occurrence: CH)
  Receive Date: 20131226
  Receipt Date: 20131226
  Transmission Date: 20140711
  Serious: Yes (Other)
  Sender: FDA-Public Use
  Company Number: CH-PFIZER INC-2013367112

PATIENT
  Age: 40 Year
  Sex: Female

DRUGS (3)
  1. XANAX [Suspect]
     Indication: DEPRESSION
     Dosage: 4 MG, 1X/DAY
  2. XANAX [Suspect]
     Dosage: 1 TO 2 MG PER DAY
  3. CYMBALTA [Suspect]
     Indication: DEPRESSION
     Dosage: 30 MG, 1X/DAY

REACTIONS (1)
  - Delayed delivery [Unknown]
